FAERS Safety Report 11244037 (Version 21)
Quarter: 2019Q1

REPORT INFORMATION
  Report Type: Spontaneous
  Country: CA (occurrence: CA)
  Receive Date: 20150707
  Receipt Date: 20190114
  Transmission Date: 20190417
  Serious: Yes (Hospitalization, Other)
  Sender: FDA-Public Use
  Company Number: CA-ROCHE-1249364

PATIENT
  Age: 69 Year
  Sex: Female
  Weight: 68 kg

DRUGS (20)
  1. XOLAIR [Suspect]
     Active Substance: OMALIZUMAB
     Route: 058
     Dates: start: 20130403
  2. XOLAIR [Suspect]
     Active Substance: OMALIZUMAB
     Route: 058
     Dates: start: 20170525
  3. XOLAIR [Suspect]
     Active Substance: OMALIZUMAB
     Route: 058
     Dates: start: 20181025
  4. XOLAIR [Suspect]
     Active Substance: OMALIZUMAB
     Route: 058
     Dates: start: 20160623
  5. XOLAIR [Suspect]
     Active Substance: OMALIZUMAB
     Route: 058
     Dates: start: 20160707
  6. XOLAIR [Suspect]
     Active Substance: OMALIZUMAB
     Route: 058
     Dates: start: 20161208
  7. XOLAIR [Suspect]
     Active Substance: OMALIZUMAB
     Route: 058
     Dates: start: 20171026
  8. CORTISONE [Concomitant]
     Active Substance: CORTISONE\HYDROCORTISONE
     Indication: PRODUCT USED FOR UNKNOWN INDICATION
     Dosage: 5 MG
     Route: 065
  9. XOLAIR [Suspect]
     Active Substance: OMALIZUMAB
     Route: 058
     Dates: start: 20170608
  10. XOLAIR [Suspect]
     Active Substance: OMALIZUMAB
     Route: 058
     Dates: start: 20181220
  11. ACCOLATE [Concomitant]
     Active Substance: ZAFIRLUKAST
     Indication: PRODUCT USED FOR UNKNOWN INDICATION
     Dosage: UNK
     Route: 065
  12. XOLAIR [Suspect]
     Active Substance: OMALIZUMAB
     Route: 058
     Dates: start: 20160114
  13. XOLAIR [Suspect]
     Active Substance: OMALIZUMAB
     Route: 058
     Dates: start: 20180927
  14. XOLAIR [Suspect]
     Active Substance: OMALIZUMAB
     Indication: ASTHMA
     Route: 058
     Dates: start: 20130320
  15. XOLAIR [Suspect]
     Active Substance: OMALIZUMAB
     Route: 058
     Dates: start: 20160929
  16. XOLAIR [Suspect]
     Active Substance: OMALIZUMAB
     Route: 058
     Dates: start: 20170202
  17. XOLAIR [Suspect]
     Active Substance: OMALIZUMAB
     Route: 058
     Dates: start: 20171221
  18. PREDNISONE. [Concomitant]
     Active Substance: PREDNISONE
     Indication: BRONCHITIS
     Dosage: UNK
     Route: 065
     Dates: start: 201509
  19. XOLAIR [Suspect]
     Active Substance: OMALIZUMAB
     Route: 058
     Dates: start: 20140724
  20. VENTOLIN [Concomitant]
     Active Substance: ALBUTEROL SULFATE
     Indication: PRODUCT USED FOR UNKNOWN INDICATION
     Dosage: UNK
     Route: 065

REACTIONS (45)
  - Pneumonia [Unknown]
  - Dementia Alzheimer^s type [Unknown]
  - Gait disturbance [Unknown]
  - Conjunctival haemorrhage [Unknown]
  - Chills [Unknown]
  - Somnolence [Unknown]
  - Pain [Unknown]
  - Night sweats [Unknown]
  - Bronchitis [Not Recovered/Not Resolved]
  - Impaired self-care [Unknown]
  - Muscle atrophy [Unknown]
  - Dyspnoea [Unknown]
  - Headache [Recovered/Resolved]
  - Fatigue [Unknown]
  - Weight increased [Unknown]
  - Nausea [Unknown]
  - Asthenia [Unknown]
  - Back pain [Not Recovered/Not Resolved]
  - Confusional state [Unknown]
  - Incoherent [Unknown]
  - Diarrhoea [Unknown]
  - Heart rate increased [Unknown]
  - Dizziness [Unknown]
  - Rib fracture [Unknown]
  - Balance disorder [Unknown]
  - Cough [Unknown]
  - Injection site bruising [Unknown]
  - Urinary tract infection [Recovered/Resolved]
  - Nosocomial infection [Unknown]
  - Mobility decreased [Unknown]
  - Weight decreased [Unknown]
  - Hiatus hernia [Unknown]
  - Weight decreased [Not Recovered/Not Resolved]
  - Cerebrovascular accident [Unknown]
  - Limb injury [Unknown]
  - Fall [Unknown]
  - Abnormal behaviour [Unknown]
  - Contusion [Unknown]
  - Body temperature increased [Unknown]
  - Vomiting [Unknown]
  - Pneumonia aspiration [Unknown]
  - Amnesia [Unknown]
  - Blood pressure decreased [Unknown]
  - Malaise [Unknown]
  - Myalgia [Unknown]

NARRATIVE: CASE EVENT DATE: 20130403
